FAERS Safety Report 18901447 (Version 1)
Quarter: 2021Q1

REPORT INFORMATION
  Report Type: Spontaneous
  Country: JP (occurrence: JP)
  Receive Date: 20210217
  Receipt Date: 20210217
  Transmission Date: 20210420
  Serious: Yes (Other)
  Sender: FDA-Public Use
  Company Number: JP-SUN PHARMACEUTICAL INDUSTRIES LTD-2021R1-280681

PATIENT
  Age: 2 Month
  Sex: Male

DRUGS (1)
  1. DEXMEDETOMIDINE. [Suspect]
     Active Substance: DEXMEDETOMIDINE
     Indication: RESPIRATORY DISTRESS
     Dosage: 0.25 MG/KG/H
     Route: 065

REACTIONS (1)
  - Sinus arrest [Unknown]
